FAERS Safety Report 9525012 (Version 1)
Quarter: 2013Q3

REPORT INFORMATION
  Report Type: Spontaneous
  Country: US (occurrence: US)
  Receive Date: 20130916
  Receipt Date: 20130916
  Transmission Date: 20140515
  Serious: Yes (Other)
  Sender: FDA-Public Use
  Company Number: US-BAYER-2013-110997

PATIENT
  Age: 69 Year
  Sex: Female
  Weight: 54.42 kg

DRUGS (7)
  1. PHILLIPS^ MILK OF MAGNESIA [Suspect]
     Indication: CONSTIPATION
     Dosage: 4 TBSP, QD
     Route: 048
     Dates: start: 2011
  2. HYDROCORTISONE [Concomitant]
  3. LEVOTHYROXINE [Concomitant]
  4. METOPROLOL [Concomitant]
  5. RAMIPRIL [Concomitant]
  6. ATORVASTATIN [Concomitant]
  7. INSULIN [Concomitant]

REACTIONS (2)
  - Rectal haemorrhage [Not Recovered/Not Resolved]
  - Incorrect drug administration duration [None]
